FAERS Safety Report 25161562 (Version 1)
Quarter: 2025Q2

REPORT INFORMATION
  Report Type: Spontaneous
  Country: JP (occurrence: JP)
  Receive Date: 20250404
  Receipt Date: 20250404
  Transmission Date: 20250717
  Serious: Yes (Hospitalization, Other)
  Sender: JOHNSON AND JOHNSON
  Company Number: JP-JNJFOC-20250406374

PATIENT

DRUGS (3)
  1. REMICADE [Suspect]
     Active Substance: INFLIXIMAB
     Indication: Colitis ulcerative
     Route: 041
  2. STELARA [Suspect]
     Active Substance: USTEKINUMAB
     Indication: Colitis ulcerative
  3. STELARA [Suspect]
     Active Substance: USTEKINUMAB

REACTIONS (10)
  - Interstitial lung disease [Unknown]
  - Infusion related reaction [Unknown]
  - Haemorrhoids [Unknown]
  - Anal prolapse [Unknown]
  - Myalgia [Unknown]
  - Fatigue [Unknown]
  - Vulvovaginal candidiasis [Unknown]
  - Abdominal pain [Unknown]
  - SARS-CoV-2 test positive [Unknown]
  - Hepatic function abnormal [Unknown]
